FAERS Safety Report 9759458 (Version 1)
Quarter: 2013Q4

REPORT INFORMATION
  Report Type: Spontaneous
  Country: US (occurrence: None)
  Receive Date: 20131216
  Receipt Date: 20131216
  Transmission Date: 20140711
  Serious: Yes (Hospitalization, Other)
  Sender: FDA-Public Use
  Company Number: 163-21880-12110048(0)

PATIENT
  Age: 74 Year
  Sex: Female
  Weight: 77 kg

DRUGS (1)
  1. REVLIMID (LENALIDOMIDE) (CAPSULES) [Suspect]
     Indication: PLASMA CELL MYELOMA
     Dosage: 10 MG, 21 IN 21 D, PO? ? ?

REACTIONS (7)
  - Rib fracture [None]
  - Pelvic fracture [None]
  - Hip fracture [None]
  - Musculoskeletal chest pain [None]
  - Dyspnoea [None]
  - Movement disorder [None]
  - Dysstasia [None]
